FAERS Safety Report 18350426 (Version 3)
Quarter: 2020Q4

REPORT INFORMATION
  Report Type: Report from Study
  Country: None (occurrence: US)
  Receive Date: 20201006
  Receipt Date: 20201113
  Transmission Date: 20210114
  Serious: Yes (Hospitalization, Other)
  Sender: FDA-Public Use
  Company Number: US-ABBVIE-20K-163-3594274-00

PATIENT
  Age: 69 Year
  Sex: Male
  Weight: 96.7 kg

DRUGS (55)
  1. CEFDINIR. [Concomitant]
     Active Substance: CEFDINIR
     Indication: PRODUCT USED FOR UNKNOWN INDICATION
  2. PREVIDENT 5000 BOOSTER PLUS 1.1% [Concomitant]
     Indication: DRY MOUTH
     Dosage: 1.1 %
  3. ONDANSETRON HCL [Concomitant]
     Active Substance: ONDANSETRON HYDROCHLORIDE
     Indication: NAUSEA
     Route: 048
     Dates: start: 202009
  4. TYLENOL [Concomitant]
     Active Substance: ACETAMINOPHEN
     Indication: PRODUCT USED FOR UNKNOWN INDICATION
     Dosage: Q6H.INT, PRN
     Route: 048
  5. CLONAZEPAM. [Concomitant]
     Active Substance: CLONAZEPAM
     Indication: AGITATION
     Route: 048
  6. CLONAZEPAM. [Concomitant]
     Active Substance: CLONAZEPAM
     Indication: ANXIETY
     Dosage: BID PRN
     Route: 048
     Dates: start: 202009
  7. OLANZAPINE. [Concomitant]
     Active Substance: OLANZAPINE
     Indication: PRODUCT USED FOR UNKNOWN INDICATION
  8. OLANZAPINE. [Concomitant]
     Active Substance: OLANZAPINE
     Route: 048
     Dates: start: 202010
  9. PIOGLITAZONE. [Concomitant]
     Active Substance: PIOGLITAZONE
     Indication: PRODUCT USED FOR UNKNOWN INDICATION
     Route: 048
  10. PIOGLITAZONE. [Concomitant]
     Active Substance: PIOGLITAZONE
     Dosage: EVERY MORNING
     Route: 048
     Dates: start: 202010
  11. TAMSULOSIN [Concomitant]
     Active Substance: TAMSULOSIN
     Route: 048
  12. VENLAFAXINE ER [Concomitant]
     Active Substance: VENLAFAXINE HYDROCHLORIDE
     Route: 048
     Dates: start: 20201002
  13. ALLOPURINOL. [Concomitant]
     Active Substance: ALLOPURINOL
     Indication: PRODUCT USED FOR UNKNOWN INDICATION
     Dosage: DISCHARGE WITH LOW DOSE
     Route: 048
     Dates: start: 202010
  14. GLUCAGONE [Concomitant]
     Dosage: PRN
     Route: 030
     Dates: start: 20201001
  15. LEXAPRO [Concomitant]
     Active Substance: ESCITALOPRAM OXALATE
     Indication: PRODUCT USED FOR UNKNOWN INDICATION
     Route: 048
  16. IMBRUVICA [Suspect]
     Active Substance: IBRUTINIB
     Indication: CHRONIC LYMPHOCYTIC LEUKAEMIA
     Route: 048
     Dates: start: 202010
  17. ATORVASTATIN [Concomitant]
     Active Substance: ATORVASTATIN
     Dosage: CDT
     Route: 048
     Dates: start: 20201002
  18. METFORMIN [Concomitant]
     Active Substance: METFORMIN HYDROCHLORIDE
     Indication: PRODUCT USED FOR UNKNOWN INDICATION
  19. NYSTATIN. [Concomitant]
     Active Substance: NYSTATIN
     Indication: PRODUCT USED FOR UNKNOWN INDICATION
     Dosage: TOPICAL POWDER FORM--APPLY TO AFFECTED AREA
     Dates: start: 202010
  20. VENLAFAXINE [Concomitant]
     Active Substance: VENLAFAXINE HYDROCHLORIDE
     Indication: PRODUCT USED FOR UNKNOWN INDICATION
     Dosage: ER 24 HR
     Route: 048
  21. CELEXA [Concomitant]
     Active Substance: CITALOPRAM HYDROBROMIDE
     Indication: PRODUCT USED FOR UNKNOWN INDICATION
     Route: 048
  22. GLUCAGONE [Concomitant]
     Indication: PRODUCT USED FOR UNKNOWN INDICATION
     Dosage: 1MG/1KIT(S), AS INDICATED,PRN
     Route: 030
  23. LEXAPRO [Concomitant]
     Active Substance: ESCITALOPRAM OXALATE
     Dosage: 3OMG/1.5
     Route: 048
  24. CITALOPRAM [Concomitant]
     Active Substance: CITALOPRAM HYDROBROMIDE
     Indication: PRODUCT USED FOR UNKNOWN INDICATION
     Route: 048
     Dates: start: 20201002
  25. INSULIN LISPRO [Concomitant]
     Active Substance: INSULIN LISPRO
     Indication: PRODUCT USED FOR UNKNOWN INDICATION
     Dosage: LOW DOSE, QID (WM AND BEDTIME)
     Route: 058
     Dates: start: 20201001
  26. IMBRUVICA [Suspect]
     Active Substance: IBRUTINIB
     Indication: CHRONIC LYMPHOCYTIC LEUKAEMIA
     Route: 048
     Dates: start: 20200928
  27. ATORVASTATIN [Concomitant]
     Active Substance: ATORVASTATIN
     Indication: PRODUCT USED FOR UNKNOWN INDICATION
     Route: 048
  28. TAMSULOSIN [Concomitant]
     Active Substance: TAMSULOSIN
     Route: 048
     Dates: start: 20201002
  29. VENLAFAXINE ER [Concomitant]
     Active Substance: VENLAFAXINE HYDROCHLORIDE
     Indication: PRODUCT USED FOR UNKNOWN INDICATION
     Route: 048
  30. HUMALOG [Concomitant]
     Active Substance: INSULIN LISPRO
     Indication: PRODUCT USED FOR UNKNOWN INDICATION
     Dosage: SLIDING SCALE, LOW DOSE SUBCUTANEOUS ,QID (WM AND BEDTIME)
     Route: 058
  31. MORPHINE [Concomitant]
     Active Substance: MORPHINE
     Indication: PAIN
     Dosage: 2MG/1MLIV,Q3H-INT, PRN
     Route: 042
  32. IMBRUVICA [Suspect]
     Active Substance: IBRUTINIB
     Route: 048
     Dates: start: 20200928, end: 20201002
  33. ESCITALOPRAM [Concomitant]
     Active Substance: ESCITALOPRAM OXALATE
     Indication: PRODUCT USED FOR UNKNOWN INDICATION
     Route: 048
  34. LOSARTAN. [Concomitant]
     Active Substance: LOSARTAN
     Dosage: IN THE EVENING
     Route: 048
     Dates: start: 201808
  35. OLANZAPINE. [Concomitant]
     Active Substance: OLANZAPINE
     Dosage: DAILY AT BEDTIME,CDT
     Route: 048
     Dates: start: 20201002
  36. CONTOUR [Concomitant]
     Indication: PRODUCT USED FOR UNKNOWN INDICATION
     Dosage: NEXT TEST STRIPS-TEST BLOOD SUGAR
     Dates: start: 202006
  37. ONDANSETRON [Concomitant]
     Active Substance: ONDANSETRON
     Indication: NAUSEA
     Dosage: 4MG/2ML, Q4H, PRN
     Route: 042
  38. IMBRUVICA [Suspect]
     Active Substance: IBRUTINIB
     Route: 048
     Dates: start: 20200925, end: 2020
  39. PREVIDENT 5000 BOOSTER PLUS 1.1% [Concomitant]
     Dosage: DRY MOUTH GEL
     Dates: start: 201908
  40. OMEPRAZOLE. [Concomitant]
     Active Substance: OMEPRAZOLE
     Indication: PRODUCT USED FOR UNKNOWN INDICATION
     Dosage: DELAYED RELEASED FOR 30 DAYS
     Route: 048
     Dates: start: 202009
  41. ONDANSETRON HCL [Concomitant]
     Active Substance: ONDANSETRON HYDROCHLORIDE
     Indication: VOMITING
  42. ACETAMINOPHEN. [Concomitant]
     Active Substance: ACETAMINOPHEN
     Indication: PRODUCT USED FOR UNKNOWN INDICATION
     Dosage: Q6H-INT PRN FOR OTHER ROUTINE, FIRST DOSE 1-OCT-2020 ,21:12:11 ODT
     Route: 048
     Dates: start: 20201001
  43. ATORVASTATIN [Concomitant]
     Active Substance: ATORVASTATIN
     Route: 048
     Dates: start: 202010
  44. LOSARTAN. [Concomitant]
     Active Substance: LOSARTAN
     Indication: PRODUCT USED FOR UNKNOWN INDICATION
  45. PREVIDENT 5000 BOOSTER PLUS 1.1% [Concomitant]
     Dosage: DENTAL PASTE
     Dates: start: 202007
  46. SODIUM CHLORIDE 0.9% [Concomitant]
     Active Substance: SODIUM CHLORIDE
     Dosage: RATE= 100 ML/HR
     Route: 042
     Dates: start: 20201001
  47. CLONAZEPAM. [Concomitant]
     Active Substance: CLONAZEPAM
     Dosage: BID PRN
     Route: 048
     Dates: start: 20201001
  48. ESCITALOPRAM [Concomitant]
     Active Substance: ESCITALOPRAM OXALATE
     Route: 048
     Dates: start: 202010
  49. METFORMIN [Concomitant]
     Active Substance: METFORMIN HYDROCHLORIDE
     Dosage: BID AC (BREAKFAST AND SUPPER)
     Route: 048
     Dates: start: 202010
  50. TAMSULOSIN [Concomitant]
     Active Substance: TAMSULOSIN
     Indication: PRODUCT USED FOR UNKNOWN INDICATION
     Route: 048
  51. D 50 W [Concomitant]
     Indication: PRODUCT USED FOR UNKNOWN INDICATION
     Dosage: 12.5GM/25ML, IV PUSH, AS INDICATE PRND
     Route: 042
  52. MORPHINE [Concomitant]
     Active Substance: MORPHINE
     Dosage: Q3H-INT PRN
     Route: 042
     Dates: start: 20201001
  53. ONDANSETRON [Concomitant]
     Active Substance: ONDANSETRON
     Indication: VOMITING
     Dosage: Q4H PRN
     Route: 042
     Dates: start: 20201001
  54. SODIUM CHLORIDE 0.9% [Concomitant]
     Active Substance: SODIUM CHLORIDE
     Indication: PRODUCT USED FOR UNKNOWN INDICATION
     Route: 042
  55. ZYPREXA [Concomitant]
     Active Substance: OLANZAPINE
     Indication: PRODUCT USED FOR UNKNOWN INDICATION
     Dosage: AT BEDTIME
     Route: 048

REACTIONS (67)
  - Flank pain [Unknown]
  - Tumour lysis syndrome [Recovered/Resolved]
  - Ureterolithiasis [Unknown]
  - Ureterolithiasis [Unknown]
  - Blood alkaline phosphatase increased [Unknown]
  - Basophil count decreased [Unknown]
  - Mean cell haemoglobin decreased [Unknown]
  - Vomiting [Unknown]
  - Erythema [Unknown]
  - Lymphocyte count increased [Unknown]
  - Hyperuricaemia [Unknown]
  - Anaemia [Unknown]
  - Haemodialysis [Unknown]
  - Haematocrit decreased [Unknown]
  - Platelet count decreased [Unknown]
  - Abdominal pain lower [Unknown]
  - Fungal infection [Unknown]
  - Thrombocytopenia [Unknown]
  - Splenomegaly [Unknown]
  - Chronic lymphocytic leukaemia [Unknown]
  - Nephrolithiasis [Unknown]
  - Type 2 diabetes mellitus [Unknown]
  - Red blood cell morphology abnormal [Unknown]
  - Mean cell volume abnormal [Unknown]
  - Eosinophil count decreased [Unknown]
  - Mean cell haemoglobin concentration decreased [Unknown]
  - Abdominal pain [Unknown]
  - Blood creatinine decreased [Unknown]
  - Benign prostatic hyperplasia [Unknown]
  - Hyperkalaemia [Unknown]
  - Lymphadenopathy [Unknown]
  - Blood uric acid abnormal [Unknown]
  - Blood glucose increased [Unknown]
  - Anisocytosis [Unknown]
  - Urinary tract infection [Unknown]
  - Protein total abnormal [Unknown]
  - Pain [Unknown]
  - Blood creatinine increased [Unknown]
  - Urinary tract obstruction [Unknown]
  - Renal injury [Recovered/Resolved]
  - Hyperphosphataemia [Unknown]
  - Blood uric acid abnormal [Unknown]
  - Blood test abnormal [Unknown]
  - Neutrophil count increased [Unknown]
  - Haemoglobin decreased [Unknown]
  - Blood creatinine increased [Unknown]
  - Tumour lysis syndrome [Recovering/Resolving]
  - Blood urea increased [Unknown]
  - Anion gap increased [Unknown]
  - Urine leukocyte esterase [Unknown]
  - Hypochromasia [Unknown]
  - Monocyte count decreased [Unknown]
  - Neutrophil count decreased [Unknown]
  - Stent placement [Unknown]
  - Acute kidney injury [Unknown]
  - Ureteric obstruction [Unknown]
  - Ureteral stent insertion [Unknown]
  - Renal cell carcinoma [Unknown]
  - Urinary casts [Unknown]
  - White blood cell count abnormal [Unknown]
  - Poikilocytosis [Unknown]
  - Red cell distribution width increased [Unknown]
  - Blood count abnormal [Unknown]
  - Urobilinogen faeces abnormal [Unknown]
  - Generalised anxiety disorder [Unknown]
  - Red blood cell count decreased [Unknown]
  - Back pain [Unknown]

NARRATIVE: CASE EVENT DATE: 2020
